FAERS Safety Report 4335783-2 (Version None)
Quarter: 2004Q2

REPORT INFORMATION
  Report Type: 
  Country: None (occurrence: None)
  Receive Date: 20040406
  Receipt Date: 20040401
  Transmission Date: 20050107
  Serious: Yes (Hospitalization)
  Sender: FDA-Public Use
  Company Number: OMPQ-PR-0403S-0204

PATIENT
  Sex: Female

DRUGS (1)
  1. OMNIPAQUE 180 [Suspect]
     Indication: DRUG USE FOR UNKNOWN INDICATION
     Dosage: 150 ML, SINGLE DOSE,  EXTRAVASATION
     Dates: start: 20040321, end: 20040321

REACTIONS (3)
  - COMPARTMENT SYNDROME [None]
  - INJECTION SITE EXTRAVASATION [None]
  - OEDEMA PERIPHERAL [None]
